FAERS Safety Report 19922831 (Version 2)
Quarter: 2023Q4

REPORT INFORMATION
  Report Type: Spontaneous
  Country: US (occurrence: US)
  Receive Date: 20211005
  Receipt Date: 20231027
  Transmission Date: 20240109
  Serious: No
  Sender: FDA-Public Use
  Company Number: US-AVEO ONCOLOGY-2021-AVEO-US003485

PATIENT

DRUGS (8)
  1. FOTIVDA [Suspect]
     Active Substance: TIVOZANIB HYDROCHLORIDE
     Indication: Renal cell carcinoma
     Dosage: 1.34 MG, DAILY FOR 21 DAYS, THEN 7-DAYS OFF
     Route: 048
  2. CALCIUM [Concomitant]
     Active Substance: CALCIUM
  3. ELIQUIS [Concomitant]
     Active Substance: APIXABAN
  4. LEVOTHYROXINE SODIUM [Concomitant]
     Active Substance: LEVOTHYROXINE SODIUM
  5. MAGNESIUM [Concomitant]
     Active Substance: MAGNESIUM
  6. MIRTAZAPINE [Concomitant]
     Active Substance: MIRTAZAPINE
  7. PROTONIX [Concomitant]
     Active Substance: PANTOPRAZOLE SODIUM
  8. ZYRTEC [Concomitant]
     Active Substance: CETIRIZINE HYDROCHLORIDE

REACTIONS (1)
  - Renal cell carcinoma [Unknown]
